FAERS Safety Report 8588773-8 (Version None)
Quarter: 2012Q3

REPORT INFORMATION
  Report Type: 
  Country: None (occurrence: None)
  Receive Date: 20120813
  Receipt Date: 20120809
  Transmission Date: 20120928
  Serious: Yes (Hospitalization)
  Sender: FDA-Public Use
  Company Number: PHHY2012BR060558

PATIENT
  Sex: Female

DRUGS (3)
  1. PREDNISOLONE [Concomitant]
     Dosage: 80 MG, TWICE
  2. PREDNISOLONE [Concomitant]
     Indication: ASTHMA
     Dosage: 5 MG, (WHEN SHE HAS AN EPISODE)
  3. FORMOTEROL FUMARATE [Suspect]
     Indication: ASTHMA
     Dosage: 2 DF, UNK

REACTIONS (5)
  - OBESITY [None]
  - DEPRESSION [None]
  - ALLERGIC GRANULOMATOUS ANGIITIS [None]
  - BONE DISORDER [None]
  - PAIN [None]
